FAERS Safety Report 9332470 (Version 2)
Quarter: 2013Q3

REPORT INFORMATION
  Report Type: Report from Study
  Country: US (occurrence: US)
  Receive Date: 20130606
  Receipt Date: 20130715
  Transmission Date: 20140515
  Serious: Yes (Other)
  Sender: FDA-Public Use
  Company Number: US-ROCHE-1231878

PATIENT
  Sex: 0

DRUGS (2)
  1. BEVACIZUMAB [Suspect]
     Indication: OVARIAN CANCER
     Dosage: UNTIL WEEK 11
     Route: 042
  2. BEVACIZUMAB [Suspect]
     Route: 042

REACTIONS (2)
  - Hyperglycaemia [Unknown]
  - Hypertension [Unknown]
